FAERS Safety Report 5718386-4 (Version None)
Quarter: 2008Q2

REPORT INFORMATION
  Report Type: 
  Country: None (occurrence: None)
  Receive Date: 20080425
  Receipt Date: 20070709
  Transmission Date: 20081010
  Serious: No
  Sender: FDA-Public Use
  Company Number: A0654862A

PATIENT
  Sex: Female

DRUGS (2)
  1. DEXAMPHETAMINE SULPHATE [Suspect]
     Indication: NARCOLEPSY
     Dosage: 40MG THREE TIMES PER DAY
     Route: 048
  2. SYNTHROID [Concomitant]

REACTIONS (2)
  - DRUG INEFFECTIVE [None]
  - THERAPEUTIC RESPONSE UNEXPECTED WITH DRUG SUBSTITUTION [None]
